FAERS Safety Report 9715242 (Version 1)
Quarter: 2013Q4

REPORT INFORMATION
  Report Type: Spontaneous
  Country: US (occurrence: US)
  Receive Date: 20131126
  Receipt Date: 20131126
  Transmission Date: 20140711
  Serious: No
  Sender: FDA-Public Use
  Company Number: US-009507513-1304USA001532

PATIENT
  Age: 97 Year
  Sex: Female

DRUGS (2)
  1. CLARITIN [Suspect]
     Indication: INFLUENZA
     Dosage: UNK, UNKNOWN
     Route: 048
  2. BENADRYL [Suspect]
     Indication: INFLUENZA
     Dosage: UNK, UNKNOWN
     Route: 048

REACTIONS (2)
  - Asthenia [Unknown]
  - Abnormal behaviour [Unknown]
